FAERS Safety Report 17517289 (Version 2)
Quarter: 2020Q2

REPORT INFORMATION
  Report Type: Spontaneous
  Country: US (occurrence: US)
  Receive Date: 20200309
  Receipt Date: 20200505
  Transmission Date: 20200713
  Serious: Yes (Other)
  Sender: FDA-Public Use
  Company Number: US-PFIZER INC-2020093986

PATIENT
  Sex: Female

DRUGS (9)
  1. CHAPSTICK MOISTURIZER [Suspect]
     Active Substance: OCTINOXATE\OXYBENZONE\PETROLATUM
     Dosage: UNK
  2. CHAPSTICK MOISTURIZER [Suspect]
     Active Substance: OCTINOXATE\OXYBENZONE\PETROLATUM
     Dosage: UNK
  3. CHAPSTICK CLASSICS ORIGINAL [Suspect]
     Active Substance: PADIMATE O\PETROLATUM
     Dosage: UNK
  4. CHAPSTICK CLASSIC CHERRY [Suspect]
     Active Substance: PETROLATUM
     Dosage: UNK
  5. CHAPSTICK MOISTURIZER [Suspect]
     Active Substance: OCTINOXATE\OXYBENZONE\PETROLATUM
     Dosage: UNK
  6. CHAPSTICK MOISTURIZER [Suspect]
     Active Substance: OCTINOXATE\OXYBENZONE\PETROLATUM
     Dosage: UNK
  7. CHAPSTICK MOISTURIZER [Suspect]
     Active Substance: OCTINOXATE\OXYBENZONE\PETROLATUM
     Dosage: UNK
  8. CHAPSTICK MOISTURIZER [Suspect]
     Active Substance: OCTINOXATE\OXYBENZONE\PETROLATUM
     Dosage: UNK
  9. CHAPSTICK CLASSIC CHERRY [Suspect]
     Active Substance: PETROLATUM
     Dosage: UNK

REACTIONS (1)
  - Macular degeneration [Unknown]
